FAERS Safety Report 4395779-1 (Version None)
Quarter: 2004Q3

REPORT INFORMATION
  Report Type: 
  Country: None (occurrence: None)
  Receive Date: 20040707
  Receipt Date: 20040622
  Transmission Date: 20050211
  Serious: Yes (Hospitalization)
  Sender: FDA-Public Use
  Company Number: DE-JNJFOC-20040608292

PATIENT
  Age: 45 Year
  Sex: Male

DRUGS (11)
  1. INFLIXIMAB, RECOMBINANT - BLINDED, LYOPHILIZED POWDER [Suspect]
     Indication: CACHEXIA
     Dosage: INTRAVENOUS
     Route: 042
     Dates: start: 20040112
  2. INFLIXIMAB, RECOMBINANT - BLINDED, LYOPHILIZED POWDER [Suspect]
     Indication: CACHEXIA
     Dosage: INTRAVENOUS
     Route: 042
     Dates: start: 20040126
  3. INFLIXIMAB, RECOMBINANT - BLINDED, LYOPHILIZED POWDER [Suspect]
     Indication: CACHEXIA
     Dosage: INTRAVENOUS
     Route: 042
     Dates: start: 20040209
  4. INFLIXIMAB, RECOMBINANT - BLINDED, LYOPHILIZED POWDER [Suspect]
     Indication: CACHEXIA
     Dosage: INTRAVENOUS
     Route: 042
     Dates: start: 20040308
  5. PLACEBO, LYOPHILIZED POWDER [Suspect]
     Indication: CACHEXIA
     Dosage: INTRAVENOUS
     Route: 042
     Dates: start: 20040112
  6. PLACEBO, LYOPHILIZED POWDER [Suspect]
     Indication: CACHEXIA
     Dosage: INTRAVENOUS
     Route: 042
     Dates: start: 20040126
  7. PLACEBO, LYOPHILIZED POWDER [Suspect]
     Indication: CACHEXIA
     Dosage: INTRAVENOUS
     Route: 042
     Dates: start: 20040209
  8. PLACEBO, LYOPHILIZED POWDER [Suspect]
     Indication: CACHEXIA
     Dosage: INTRAVENOUS
     Route: 042
     Dates: start: 20040308
  9. TAXOTERE [Suspect]
     Indication: PANCREATIC CARCINOMA
     Dates: start: 20040405
  10. CISPLATIN [Suspect]
     Indication: PANCREATIC CARCINOMA
     Dates: start: 20040405
  11. GEMCITABINE [Concomitant]

REACTIONS (11)
  - BLOOD PRESSURE DECREASED [None]
  - BONE MARROW DEPRESSION [None]
  - C-REACTIVE PROTEIN INCREASED [None]
  - CACHEXIA [None]
  - COLD SWEAT [None]
  - FLUID INTAKE REDUCED [None]
  - GENERAL PHYSICAL CONDITION ABNORMAL [None]
  - HYPOTENSION [None]
  - MALIGNANT NEOPLASM PROGRESSION [None]
  - RENAL FAILURE [None]
  - SEPSIS [None]
